FAERS Safety Report 24303814 (Version 1)
Quarter: 2024Q3

REPORT INFORMATION
  Report Type: Spontaneous
  Country: CN (occurrence: CN)
  Receive Date: 20240910
  Receipt Date: 20240910
  Transmission Date: 20241016
  Serious: Yes (Hospitalization, Other)
  Sender: FRESENIUS KABI
  Company Number: CN-FreseniusKabi-FK202413410

PATIENT
  Age: 1 Month
  Sex: Female
  Weight: 1 kg

DRUGS (2)
  1. SMOFLIPID [Suspect]
     Active Substance: FISH OIL\MEDIUM-CHAIN TRIGLYCERIDES\OLIVE OIL\SOYBEAN OIL
     Indication: Adjuvant therapy
     Dosage: FORM OF ADMIN: INJECTION
     Route: 041
     Dates: start: 20240601, end: 20240702
  2. AMINO ACIDS, SOURCE UNSPECIFIED [Suspect]
     Active Substance: AMINO ACIDS, SOURCE UNSPECIFIED
     Indication: Adjuvant therapy
     Dosage: FORM OF ADMIN.: INJECTION
     Route: 041
     Dates: start: 20240601, end: 20240702

REACTIONS (1)
  - Cholestatic liver injury [Recovered/Resolved]

NARRATIVE: CASE EVENT DATE: 20240708
